FAERS Safety Report 9443417 (Version 1)
Quarter: 2013Q3

REPORT INFORMATION
  Report Type: Spontaneous
  Country: ZA (occurrence: ZA)
  Receive Date: 20130806
  Receipt Date: 20130806
  Transmission Date: 20140515
  Serious: Yes (Hospitalization)
  Sender: FDA-Public Use
  Company Number: ZA-GLAXOSMITHKLINE-B0912481A

PATIENT
  Sex: Male

DRUGS (4)
  1. LAMICTIN [Suspect]
     Indication: EPILEPSY
     Dosage: 100MG TWICE PER DAY
     Route: 065
     Dates: start: 201208
  2. EPILIM [Suspect]
     Indication: EPILEPSY
     Dosage: 600MG TWICE PER DAY
     Route: 065
     Dates: start: 200808, end: 20130722
  3. ESCITALOPRAM [Suspect]
     Indication: DEPRESSION
     Route: 065
  4. LEVETIRACETAM [Concomitant]
     Dosage: 500MG TWICE PER DAY
     Route: 065

REACTIONS (4)
  - Convulsion [Unknown]
  - Tremor [Unknown]
  - Fall [Unknown]
  - Weight increased [Unknown]
